FAERS Safety Report 23282638 (Version 4)
Quarter: 2024Q2

REPORT INFORMATION
  Report Type: Spontaneous
  Country: AU (occurrence: AU)
  Receive Date: 20231211
  Receipt Date: 20240604
  Transmission Date: 20240715
  Serious: Yes (Hospitalization, Other)
  Sender: FDA-Public Use
  Company Number: AU-MYLANLABS-2023M1112627

PATIENT
  Age: 60 Year
  Sex: Female
  Weight: 142 kg

DRUGS (4)
  1. CLOZARIL [Suspect]
     Active Substance: CLOZAPINE
     Indication: Schizophrenia
     Dosage: 100 MILLIGRAM
     Route: 048
     Dates: start: 20220527, end: 20231005
  2. CLOZARIL [Suspect]
     Active Substance: CLOZAPINE
     Dosage: 125 MILLIGRAM
     Route: 048
     Dates: start: 20220527
  3. CLOZARIL [Suspect]
     Active Substance: CLOZAPINE
     Dosage: 150 MILLIGRAM, QD (150 MG AT 10 PM)
     Route: 048
     Dates: start: 20220527
  4. SENNA [Concomitant]
     Active Substance: SENNA LEAF\SENNOSIDES\SENNOSIDES A AND B
     Indication: Constipation
     Dosage: UNK
     Route: 065

REACTIONS (13)
  - Troponin increased [Recovering/Resolving]
  - Mental impairment [Unknown]
  - Cardiac failure [Unknown]
  - Saliva analysis abnormal [Unknown]
  - Dyspnoea [Unknown]
  - Chest pain [Unknown]
  - Dizziness [Unknown]
  - Constipation [Unknown]
  - Somnolence [Unknown]
  - Sedation [Not Recovered/Not Resolved]
  - Salivary hypersecretion [Not Recovered/Not Resolved]
  - Nausea [Unknown]
  - Vomiting [Unknown]

NARRATIVE: CASE EVENT DATE: 20231003
